FAERS Safety Report 5346391-9 (Version None)
Quarter: 2007Q2

REPORT INFORMATION
  Report Type: 
  Country: None (occurrence: None)
  Receive Date: 20070605
  Receipt Date: 20070528
  Transmission Date: 20071010
  Serious: Yes (Life-Threatening, Hospitalization)
  Sender: FDA-Public Use
  Company Number: JP-ELI_LILLY_AND_COMPANY-JP200705007199

PATIENT
  Age: 43 Year
  Sex: Female
  Weight: 54 kg

DRUGS (6)
  1. TADALAFIL [Suspect]
     Indication: PULMONARY HYPERTENSION
     Dosage: 10 MG, DAILY (1/D)
     Dates: start: 20070205, end: 20070527
  2. PREDNISOLONE [Concomitant]
     Indication: SYSTEMIC LUPUS ERYTHEMATOSUS
     Dosage: 6 MG, DAILY (1/D)
     Route: 048
     Dates: end: 20070527
  3. WARFARIN SODIUM [Concomitant]
     Indication: PULMONARY HYPERTENSION
     Dosage: 4.5 MG, DAILY (1/D)
     Route: 048
     Dates: end: 20070527
  4. THYRADIN S [Concomitant]
     Indication: AUTOIMMUNE THYROIDITIS
     Dosage: 100 UG, DAILY (1/D)
     Route: 048
     Dates: end: 20070527
  5. DIART [Concomitant]
     Indication: RIGHT VENTRICULAR FAILURE
     Dosage: 60 MG, DAILY (1/D)
     Route: 048
     Dates: end: 20070527
  6. ALDACTONE [Concomitant]
     Indication: RIGHT VENTRICULAR FAILURE
     Dosage: 25 MG, DAILY (1/D)
     Route: 048
     Dates: end: 20070527

REACTIONS (1)
  - OESOPHAGEAL VARICES HAEMORRHAGE [None]
